FAERS Safety Report 5496698-X (Version None)
Quarter: 2007Q4

REPORT INFORMATION
  Report Type: 
  Country: None (occurrence: None)
  Receive Date: 20071023
  Receipt Date: 20071023
  Transmission Date: 20080405
  Serious: Yes (Other)
  Sender: FDA-Public Use
  Company Number: None

PATIENT
  Sex: Female
  Weight: 62.1428 kg

DRUGS (2)
  1. ACCUTANE [Suspect]
     Dosage: 80MG ALTERNATING 40MG  DAILY  PO;  80MG DAILY PO
     Route: 048
     Dates: start: 19930823, end: 19940115
  2. ACCUTANE [Suspect]
     Dosage: 80MG ALTERNATING 40MG  DAILY  PO;  80MG DAILY PO
     Route: 048
     Dates: start: 19940810, end: 19950115

REACTIONS (3)
  - ANXIETY [None]
  - DEPRESSION [None]
  - SUICIDAL IDEATION [None]
